FAERS Safety Report 24553887 (Version 1)
Quarter: 2024Q4

REPORT INFORMATION
  Report Type: Spontaneous
  Country: CN (occurrence: CN)
  Receive Date: 20241028
  Receipt Date: 20241028
  Transmission Date: 20250114
  Serious: Yes (Other)
  Sender: ROCHE
  Company Number: CN-ROCHE-10000113241

PATIENT
  Age: 73 Year
  Sex: Male
  Weight: 55 kg

DRUGS (11)
  1. BEVACIZUMAB [Suspect]
     Active Substance: BEVACIZUMAB
     Indication: Colon cancer
     Route: 065
  2. FLUOROURACIL [Suspect]
     Active Substance: FLUOROURACIL
     Indication: Colon cancer
     Route: 065
  3. OXALIPLATIN [Suspect]
     Active Substance: OXALIPLATIN
     Indication: Colon cancer
     Route: 065
  4. LEUCOVORIN CALCIUM [Suspect]
     Active Substance: LEUCOVORIN CALCIUM
     Indication: Colon cancer
     Route: 065
  5. CAPECITABINE [Suspect]
     Active Substance: CAPECITABINE
     Indication: Colon cancer
     Route: 065
     Dates: start: 201910
  6. IRINOTECAN HYDROCHLORIDE [Suspect]
     Active Substance: IRINOTECAN HYDROCHLORIDE
     Indication: Colon cancer
     Route: 065
     Dates: start: 202004
  7. FRUQUINTINIB [Suspect]
     Active Substance: FRUQUINTINIB
     Indication: Myocarditis
     Route: 065
  8. CETUXIMAB [Suspect]
     Active Substance: CETUXIMAB
     Indication: Colon cancer
     Route: 065
     Dates: start: 202007
  9. TORIPALIMAB [Suspect]
     Active Substance: TORIPALIMAB
     Indication: Myocarditis
     Route: 065
     Dates: start: 202109
  10. RALTITREXED [Suspect]
     Active Substance: RALTITREXED
     Indication: Myocarditis
     Route: 065
     Dates: start: 2020
  11. REGORAFENIB [Suspect]
     Active Substance: REGORAFENIB
     Indication: Myocarditis
     Route: 065

REACTIONS (3)
  - Metastases to bone [Unknown]
  - Immune-mediated myocarditis [Recovered/Resolved]
  - Disease progression [Unknown]
